FAERS Safety Report 9417952 (Version 1)
Quarter: 2013Q3

REPORT INFORMATION
  Report Type: Spontaneous
  Country: US (occurrence: US)
  Receive Date: 20130724
  Receipt Date: 20130724
  Transmission Date: 20140515
  Serious: No
  Sender: FDA-Public Use
  Company Number: US-BAUSCH-BL-2012-001085

PATIENT
  Sex: Female

DRUGS (2)
  1. OPCON-A [Suspect]
     Indication: MULTIPLE ALLERGIES
     Dosage: AS NEEDED
     Route: 047
     Dates: end: 20120920
  2. OPCON-A [Suspect]
     Indication: EYE PRURITUS

REACTIONS (5)
  - Mydriasis [Recovered/Resolved]
  - Paraesthesia [Recovered/Resolved]
  - Hypoaesthesia [Recovered/Resolved]
  - Photophobia [Recovered/Resolved]
  - Expired drug administered [Recovered/Resolved]
